FAERS Safety Report 25439754 (Version 1)
Quarter: 2025Q2

REPORT INFORMATION
  Report Type: Spontaneous
  Country: DE (occurrence: DE)
  Receive Date: 20250616
  Receipt Date: 20250616
  Transmission Date: 20250717
  Serious: Yes (Other)
  Sender: ANI
  Company Number: DE-ANIPHARMA-2025-DE-000041

PATIENT
  Sex: Female

DRUGS (1)
  1. CANDESARTAN [Suspect]
     Active Substance: CANDESARTAN
     Indication: Hypertension

REACTIONS (2)
  - Hypertensive crisis [Unknown]
  - Blood pressure fluctuation [Unknown]
